FAERS Safety Report 14790087 (Version 1)
Quarter: 2018Q2

REPORT INFORMATION
  Report Type: Report from Study
  Country: BR (occurrence: BR)
  Receive Date: 20180423
  Receipt Date: 20180423
  Transmission Date: 20180711
  Serious: Yes (Life-Threatening)
  Sender: FDA-Public Use
  Company Number: PHHY2017BR120265

PATIENT
  Sex: Female
  Weight: 88 kg

DRUGS (1)
  1. ACLASTA [Suspect]
     Active Substance: ZOLEDRONIC ACID
     Indication: OSTEOARTHRITIS
     Dosage: 1 DF (5 MG/100 ML), Q12MO
     Route: 042
     Dates: start: 20170728, end: 20170728

REACTIONS (12)
  - Diarrhoea [Unknown]
  - Product use in unapproved indication [Unknown]
  - Gait inability [Unknown]
  - Retching [Unknown]
  - Malaise [Unknown]
  - Neck pain [Recovering/Resolving]
  - Arthralgia [Unknown]
  - Bone pain [Recovering/Resolving]
  - Dysstasia [Not Recovered/Not Resolved]
  - Pain [Not Recovered/Not Resolved]
  - Drug ineffective [Unknown]
  - Syncope [Unknown]
